FAERS Safety Report 8142852 (Version 2)
Quarter: 2013Q2

REPORT INFORMATION
  Report Type: Spontaneous
  Country: US (occurrence: None)
  Receive Date: 20110825
  Receipt Date: 20130225
  Transmission Date: 20140414
  Serious: No
  Sender: FDA-Public Use
  Company Number: 327471

PATIENT
  Age: 62 Year
  Sex: Male

DRUGS (1)
  1. VICTOZA [Suspect]
     Indication: TYPE 2 DIABETES MELLITUS
     Dosage: 0.6 MG, QD, SUBCUTANEOUS ; 1.2 MG, QD
     Route: 058
     Dates: start: 201010

REACTIONS (3)
  - WEIGHT INCREASED [None]
  - NAUSEA [None]
  - BLOOD GLUCOSE INCREASED [None]
